FAERS Safety Report 10051630 (Version 1)
Quarter: 2014Q1

REPORT INFORMATION
  Report Type: Spontaneous
  Country: US (occurrence: None)
  Receive Date: 20140331
  Receipt Date: 20140331
  Transmission Date: 20141002
  Serious: Yes (Life-Threatening, Hospitalization)
  Sender: FDA-Public Use
  Company Number: PR-AE14-000295

PATIENT
  Sex: Female

DRUGS (3)
  1. GOODYS EXTRA STRENGTH [Suspect]
     Indication: ANALGESIC THERAPY
     Route: 048
  2. OPANA (OXYMORPHONE HYDROCHLORIDE) [Concomitant]
  3. MORPHINE [Concomitant]

REACTIONS (3)
  - Gastric ulcer [None]
  - Gastrointestinal haemorrhage [None]
  - Incorrect dose administered [None]
